FAERS Safety Report 5014702-X (Version None)
Quarter: 2006Q2

REPORT INFORMATION
  Report Type: 
  Country: None (occurrence: None)
  Receive Date: 20060531
  Receipt Date: 20050225
  Transmission Date: 20061013
  Serious: Yes (Life-Threatening, Other)
  Sender: FDA-Public Use
  Company Number: US-GLAXOSMITHKLINE-A0547389A

PATIENT
  Age: 50 Year
  Sex: Female
  Weight: 63.6 kg

DRUGS (2)
  1. LAMICTAL [Suspect]
     Indication: BIPOLAR DISORDER
     Route: 048
     Dates: start: 20010720, end: 20010810
  2. AMOXICILLIN [Suspect]
     Indication: BRONCHITIS
     Route: 065
     Dates: start: 20010630, end: 20010810

REACTIONS (2)
  - ASTHENIA [None]
  - STEVENS-JOHNSON SYNDROME [None]
